FAERS Safety Report 10063390 (Version 1)
Quarter: 2014Q2

REPORT INFORMATION
  Report Type: Spontaneous
  Country: US (occurrence: US)
  Receive Date: 20140407
  Receipt Date: 20140407
  Transmission Date: 20141212
  Serious: Yes (Life-Threatening, Hospitalization)
  Sender: FDA-Public Use
  Company Number: US-ACTAVIS-2014-06407

PATIENT
  Age: 57 Year
  Sex: Female

DRUGS (2)
  1. ALENDRONATE SODIUM (WATSON LABORATORIES) [Suspect]
     Indication: OSTEOPOROSIS
     Dosage: 70 MG, SINGLE
     Route: 048
  2. ALENDRONATE SODIUM (WATSON LABORATORIES) [Suspect]
     Dosage: 70 MG, 1/WEEK
     Route: 048

REACTIONS (2)
  - Noninfective bronchitis [Recovering/Resolving]
  - Tracheal obstruction [Recovering/Resolving]
